FAERS Safety Report 17286015 (Version 1)
Quarter: 2020Q1

REPORT INFORMATION
  Report Type: Spontaneous
  Country: DE (occurrence: DE)
  Receive Date: 20200118
  Receipt Date: 20200118
  Transmission Date: 20200409
  Serious: Yes (Hospitalization, Other)
  Sender: FDA-Public Use
  Company Number: DE-AUROBINDO-AUR-APL-2020-002443

PATIENT
  Sex: Female
  Weight: 68 kg

DRUGS (2)
  1. ETHINYLESTRADIOL+DIENOGEST [Suspect]
     Active Substance: DIENOGEST\ETHINYL ESTRADIOL
     Indication: HORMONAL CONTRACEPTION
     Dosage: UNK
     Route: 065
     Dates: start: 2011
  2. IBUPROFEN. [Suspect]
     Active Substance: IBUPROFEN
     Indication: PRODUCT USED FOR UNKNOWN INDICATION
     Dosage: UNK
     Route: 065
     Dates: start: 201904

REACTIONS (2)
  - Thrombophlebitis [Recovering/Resolving]
  - Muscular weakness [Recovering/Resolving]

NARRATIVE: CASE EVENT DATE: 20190405
